FAERS Safety Report 10900974 (Version 1)
Quarter: 2015Q1

REPORT INFORMATION
  Report Type: Spontaneous
  Country: FR (occurrence: FR)
  Receive Date: 20150310
  Receipt Date: 20150310
  Transmission Date: 20150721
  Serious: Yes (Hospitalization)
  Sender: FDA-Public Use
  Company Number: FR-NOVOPROD-441052

PATIENT
  Age: 57 Year
  Sex: Female

DRUGS (21)
  1. ESIDREX [Suspect]
     Active Substance: HYDROCHLOROTHIAZIDE
     Indication: PRODUCT USED FOR UNKNOWN INDICATION
     Dosage: 25 MG, QD
     Route: 048
     Dates: start: 20141126, end: 20150210
  2. ALDACTONE [Concomitant]
     Active Substance: SPIRONOLACTONE
     Dosage: 25 MG, QD
     Route: 065
  3. DUPHALAC [Concomitant]
     Active Substance: LACTULOSE
     Dosage: 1 DF, BID
     Route: 065
  4. IKOREL [Concomitant]
     Active Substance: NICORANDIL
     Dosage: 10 MG, BID
     Route: 065
  5. KALEORID [Concomitant]
     Active Substance: POTASSIUM CHLORIDE
     Dosage: 2 TAB, TID
     Route: 065
  6. SERETIDE [Concomitant]
     Active Substance: FLUTICASONE FUROATE\SALMETEROL XINAFOATE
     Dosage: 1 DF, BID
     Route: 065
  7. LASILIX                            /00032601/ [Concomitant]
     Active Substance: FUROSEMIDE
     Dosage: 120 MG, QD (80 MG IN MORNING AND 40 MG AT NOON)
     Route: 065
  8. DOLIPRANE [Concomitant]
     Active Substance: ACETAMINOPHEN
     Dosage: 500 MG, QID
     Route: 065
  9. METFORMINE [Concomitant]
     Active Substance: METFORMIN HYDROCHLORIDE
     Dosage: 1000 MG, BID
     Route: 065
     Dates: start: 20141126
  10. TEMERIT [Concomitant]
     Active Substance: NEBIVOLOL
     Dosage: 5 MG, BID
     Route: 065
  11. LANTUS [Concomitant]
     Active Substance: INSULIN GLARGINE
     Dosage: 60 IU, QD (EVENING)
     Route: 065
  12. EUPRESSYL                          /00631801/ [Concomitant]
     Active Substance: URAPIDIL
     Dosage: 90 MG, TID
     Route: 065
  13. PROCORALAN [Concomitant]
     Active Substance: IVABRADINE
     Dosage: 5 MG, BID
     Route: 065
  14. LIORESAL [Concomitant]
     Active Substance: BACLOFEN
     Dosage: 10 MG, TID
     Route: 065
  15. HYPERIUM [Concomitant]
     Active Substance: RILMENIDINE PHOSPHATE
     Dosage: 1 MG, BID
     Route: 065
  16. AMLOR [Concomitant]
     Active Substance: AMLODIPINE BESYLATE
     Dosage: 10 MG, QD
     Route: 065
  17. PLAVIX [Concomitant]
     Active Substance: CLOPIDOGREL BISULFATE
     Dosage: 75 MG, QD
     Route: 065
  18. NEURONTIN [Concomitant]
     Active Substance: GABAPENTIN
     Dosage: 1500 MG, QD (900 MG IN MORNING AND EVENING 600 MG AT NOON)
  19. VICTOZA [Suspect]
     Active Substance: LIRAGLUTIDE
     Indication: PRODUCT USED FOR UNKNOWN INDICATION
     Dosage: 1.2 MG, QD
     Route: 058
     Dates: start: 20141126, end: 20150206
  20. ATORVASTATIN [Concomitant]
     Active Substance: ATORVASTATIN
     Dosage: 40 MG, QD
     Route: 065
  21. DISCOTRINE [Concomitant]
     Active Substance: NITROGLYCERIN
     Dosage: 5 MG, QD (1 PATCH/24 H)
     Route: 065

REACTIONS (3)
  - Lipase increased [Recovering/Resolving]
  - Abdominal pain upper [Recovering/Resolving]
  - Pancreatitis [Recovering/Resolving]

NARRATIVE: CASE EVENT DATE: 20150202
